FAERS Safety Report 20207503 (Version 1)
Quarter: 2021Q4

REPORT INFORMATION
  Report Type: Report from Study
  Country: BR (occurrence: BR)
  Receive Date: 20211220
  Receipt Date: 20211220
  Transmission Date: 20220303
  Serious: Yes (Other)
  Sender: FDA-Public Use
  Company Number: BR-TAKEDA-BR202023688

PATIENT
  Sex: Male
  Weight: 45 kg

DRUGS (2)
  1. HEMO-8R [Suspect]
     Active Substance: ANTIHEMOPHILIC FACTOR, HUMAN RECOMBINANT
     Indication: Factor VIII deficiency
     Dosage: 1250 INTERNATIONAL UNIT, 3/WEEK
     Route: 042
     Dates: start: 20171226
  2. HEMO-8R [Suspect]
     Active Substance: ANTIHEMOPHILIC FACTOR, HUMAN RECOMBINANT
     Dosage: 1250 INTERNATIONAL UNIT, 2/WEEK
     Route: 042
     Dates: start: 20171226

REACTIONS (14)
  - Epistaxis [Unknown]
  - Drug ineffective [Unknown]
  - Nervousness [Unknown]
  - Pain in extremity [Recovering/Resolving]
  - Oropharyngeal pain [Unknown]
  - Fatigue [Unknown]
  - Poor venous access [Unknown]
  - Joint swelling [Recovering/Resolving]
  - Peripheral swelling [Unknown]
  - Off label use [Unknown]
  - Injury [Unknown]
  - Fall [Recovering/Resolving]
  - Blood cholesterol increased [Unknown]
  - Incorrect dose administered [Unknown]
